FAERS Safety Report 13119350 (Version 1)
Quarter: 2017Q1

REPORT INFORMATION
  Report Type: Spontaneous
  Country: AU (occurrence: AU)
  Receive Date: 20170116
  Receipt Date: 20170116
  Transmission Date: 20170428
  Serious: Yes (Other)
  Sender: FDA-Public Use
  Company Number: AU-GILEAD-2017-0252979

PATIENT
  Sex: Male

DRUGS (5)
  1. RIBAVIRIN. [Suspect]
     Active Substance: RIBAVIRIN
     Indication: CHRONIC HEPATITIS C
     Dosage: UNK
     Route: 065
     Dates: start: 20160323, end: 20160615
  2. SOVALDI [Suspect]
     Active Substance: SOFOSBUVIR
     Indication: CHRONIC HEPATITIS C
     Dosage: UNK
     Route: 065
     Dates: start: 20160323, end: 20160615
  3. METHADONE [Concomitant]
     Active Substance: METHADONE HYDROCHLORIDE
     Dosage: 145 UNK, UNK
     Route: 065
  4. PREGABLIN [Concomitant]
     Route: 065
  5. SPRIOLACTONE [Concomitant]
     Route: 065

REACTIONS (4)
  - Drug dose omission [Recovered/Resolved]
  - Hepatitis C [Unknown]
  - Drug ineffective [Unknown]
  - Treatment noncompliance [Recovered/Resolved]
